FAERS Safety Report 4666633-2 (Version None)
Quarter: 2005Q2

REPORT INFORMATION
  Report Type: 
  Country: None (occurrence: None)
  Receive Date: 20050519
  Receipt Date: 20050112
  Transmission Date: 20051028
  Serious: Yes (Disabling, Other)
  Sender: FDA-Public Use
  Company Number: PHBS2005CA00840

PATIENT
  Age: 68 Year
  Sex: Male

DRUGS (11)
  1. REPLAVITE [Concomitant]
     Dosage: 1 CUP, QHS
     Route: 048
  2. AREDIA [Suspect]
     Indication: MULTIPLE MYELOMA
     Dosage: 90 MG, UNK
     Dates: start: 20001001, end: 20041001
  3. AMIODARONE HCL [Concomitant]
     Dosage: 200 MG, QID
     Route: 065
  4. CALCIUM CARBONATE [Concomitant]
     Dosage: 500 MG, TID
  5. MULTI-VITAMINS [Concomitant]
  6. EPREX [Concomitant]
  7. PALAFER [Concomitant]
     Dosage: 300 MG, QHS
  8. LABETALOL [Concomitant]
     Dosage: 200 MG, TID
     Route: 065
  9. LEVOTHYROXINE SODIUM [Concomitant]
     Dosage: 0.2 MG/D
     Route: 065
  10. CANDESARTAN [Concomitant]
  11. PAMIDRONATE DISODIUM [Concomitant]

REACTIONS (7)
  - HYPERBARIC OXYGEN THERAPY [None]
  - INFECTION [None]
  - OSTEONECROSIS [None]
  - PRIMARY SEQUESTRUM [None]
  - SEQUESTRECTOMY [None]
  - TOOTH EXTRACTION [None]
  - WOUND DEBRIDEMENT [None]
